APPROVED DRUG PRODUCT: METHOCARBAMOL
Active Ingredient: METHOCARBAMOL
Strength: 1GM
Dosage Form/Route: TABLET;ORAL
Application: A212707 | Product #001 | TE Code: AB
Applicant: MIKART LLC
Approved: Jun 12, 2023 | RLD: No | RS: No | Type: RX